FAERS Safety Report 8315329-4 (Version None)
Quarter: 2012Q2

REPORT INFORMATION
  Report Type: 
  Country: None (occurrence: None)
  Receive Date: 20120426
  Receipt Date: 20120419
  Transmission Date: 20120825
  Serious: Yes (Hospitalization)
  Sender: FDA-Public Use
  Company Number: BR-ELI_LILLY_AND_COMPANY-BR201204006940

PATIENT
  Sex: Male

DRUGS (2)
  1. HUMALOG MIX 50/50 [Suspect]
     Indication: TYPE 2 DIABETES MELLITUS
     Dosage: UNK, UNKNOWN
     Route: 058
  2. HUMALOG MIX 50/50 [Suspect]
     Dosage: UNK, UNKNOWN
     Route: 058

REACTIONS (2)
  - VOMITING [None]
  - BLOOD SODIUM DECREASED [None]
